FAERS Safety Report 4282250-0 (Version None)
Quarter: 2004Q1

REPORT INFORMATION
  Report Type: 
  Country: None (occurrence: None)
  Receive Date: 20040112
  Receipt Date: 20031024
  Transmission Date: 20041129
  Serious: Yes (Hospitalization)
  Sender: FDA-Public Use
  Company Number: SP-199700256

PATIENT
  Age: 51 Year
  Sex: Male

DRUGS (4)
  1. REOPRO [Suspect]
     Indication: CORONARY ANGIOPLASTY
     Dosage: INTRAVENOUS DRIP
     Route: 041
     Dates: start: 19970502
  2. HEPARIN [Suspect]
     Dates: start: 19970502
  3. PLATELETS () PLATELETS, HUMAN BLOOD [Concomitant]
  4. PACKED RED BLOOD CELLS () RED BLOOD CELLS [Concomitant]

REACTIONS (3)
  - HAEMATOMA [None]
  - HAEMORRHAGE [None]
  - HYPOTENSION [None]
